FAERS Safety Report 5565658-2 (Version None)
Quarter: 2007Q4

REPORT INFORMATION
  Report Type: 
  Country: None (occurrence: None)
  Receive Date: 20071218
  Receipt Date: 20071203
  Transmission Date: 20080405
  Serious: Yes (Other)
  Sender: FDA-Public Use
  Company Number: GB-PFIZER INC-2007105113

PATIENT
  Age: 41 Year
  Sex: Female
  Weight: 61.8 kg

DRUGS (2)
  1. CHAMPIX [Suspect]
     Indication: SMOKING CESSATION THERAPY
     Route: 048
  2. CIPRALEX [Concomitant]
     Route: 048

REACTIONS (4)
  - FLASHBACK [None]
  - IMPAIRED WORK ABILITY [None]
  - NIGHTMARE [None]
  - SUICIDAL IDEATION [None]
